FAERS Safety Report 7670055-X (Version None)
Quarter: 2011Q3

REPORT INFORMATION
  Report Type: 
  Country: None (occurrence: None)
  Receive Date: 20110808
  Receipt Date: 20110802
  Transmission Date: 20111222
  Serious: Yes (Death)
  Sender: FDA-Public Use
  Company Number: DE-ASTRAZENECA-2011SE11117

PATIENT
  Sex: Male
  Weight: 65 kg

DRUGS (12)
  1. LYRICA [Suspect]
     Route: 048
     Dates: start: 20100111, end: 20100213
  2. JONOSTERIL [Concomitant]
     Route: 042
     Dates: start: 20100213, end: 20100216
  3. LOSARTAN POTASSIUM [Concomitant]
     Dates: end: 20100212
  4. SEROQUEL [Suspect]
     Indication: VASCULAR DEMENTIA
     Route: 048
     Dates: start: 20100210, end: 20100212
  5. FENTANYL [Suspect]
     Dosage: 25 AT UNKNOWN FREQUENCY
     Dates: end: 20100211
  6. HALDOL [Suspect]
     Route: 042
     Dates: start: 20100215, end: 20100216
  7. FENTANYL [Suspect]
     Dosage: 50 AT UNKNOWN FREQUENCY
     Dates: start: 20100212, end: 20100213
  8. DOMINAL [Suspect]
     Route: 048
     Dates: start: 20100210, end: 20100213
  9. ENOXAPARIN SODIUM [Concomitant]
     Dosage: 1 AMPOULE
     Route: 058
     Dates: start: 20100210, end: 20100216
  10. TORSEMIDE [Concomitant]
     Dates: end: 20100212
  11. FENTANYL [Suspect]
     Dosage: 75 AT UNKNOWN FREQUENCY
     Dates: start: 20100214, end: 20100216
  12. FUROSEMIDE [Concomitant]
     Route: 048
     Dates: start: 20100213, end: 20100216

REACTIONS (1)
  - PNEUMONIA [None]
